FAERS Safety Report 6258626-9 (Version None)
Quarter: 2009Q3

REPORT INFORMATION
  Report Type: 
  Country: None (occurrence: None)
  Receive Date: 20090707
  Receipt Date: 20090703
  Transmission Date: 20100115
  Serious: Yes (Life-Threatening)
  Sender: FDA-Public Use
  Company Number: CA-JNJFOC-20090701318

PATIENT
  Age: 48 Year
  Sex: Male

DRUGS (4)
  1. RISPERDAL [Suspect]
     Indication: DRUG USE FOR UNKNOWN INDICATION
     Route: 065
  2. CLOZARIL [Suspect]
     Indication: DRUG USE FOR UNKNOWN INDICATION
     Route: 048
  3. EPIVAL [Concomitant]
     Route: 065
  4. KEMADRIN [Concomitant]
     Route: 065

REACTIONS (2)
  - LEUKOPENIA [None]
  - NEUTROPENIA [None]
